FAERS Safety Report 8164301-6 (Version None)
Quarter: 2012Q1

REPORT INFORMATION
  Report Type: 
  Country: None (occurrence: None)
  Receive Date: 20120224
  Receipt Date: 20110411
  Transmission Date: 20120608
  Serious: Yes (Hospitalization)
  Sender: FDA-Public Use
  Company Number: US-MYLANLABS-2011S1007649

PATIENT
  Age: 74 Year
  Sex: Male

DRUGS (1)
  1. ATENOLOL [Suspect]

REACTIONS (2)
  - SYNCOPE [None]
  - BRADYCARDIA [None]
